FAERS Safety Report 19690370 (Version 1)
Quarter: 2021Q3

REPORT INFORMATION
  Report Type: Spontaneous
  Country: US (occurrence: US)
  Receive Date: 20210812
  Receipt Date: 20210812
  Transmission Date: 20211014
  Serious: No
  Sender: FDA-Public Use
  Company Number: US-PFIZER INC-2021651321

PATIENT
  Age: 49 Year
  Sex: Female
  Weight: 117.93 kg

DRUGS (5)
  1. TOZINAMERAN. [Suspect]
     Active Substance: TOZINAMERAN
     Indication: COVID-19 IMMUNISATION
     Dosage: DOSE 2, SINGLE
  2. CHANTIX [Suspect]
     Active Substance: VARENICLINE TARTRATE
     Dosage: ENDED UP TAKING TWICE DAILY BY MOUTH.
     Route: 048
     Dates: start: 202105
  3. ZOLMITRIPTAN. [Concomitant]
     Active Substance: ZOLMITRIPTAN
     Indication: MIGRAINE
     Dosage: UNK
  4. FIORICET [Concomitant]
     Active Substance: ACETAMINOPHEN\BUTALBITAL\CAFFEINE
     Indication: MIGRAINE
     Dosage: UNK
  5. CHANTIX [Suspect]
     Active Substance: VARENICLINE TARTRATE
     Dosage: STARTER PACK.  STARTED ONE TABLET DAILY
     Route: 048
     Dates: start: 202105

REACTIONS (13)
  - Balance disorder [Unknown]
  - Feeling of body temperature change [Not Recovered/Not Resolved]
  - Disease recurrence [Not Recovered/Not Resolved]
  - Dyspnoea [Unknown]
  - Mental disorder [Unknown]
  - Decreased appetite [Not Recovered/Not Resolved]
  - Anger [Unknown]
  - Product dose omission issue [Unknown]
  - Emotional disorder [Recovering/Resolving]
  - Hyperhidrosis [Not Recovered/Not Resolved]
  - Cough [Not Recovered/Not Resolved]
  - Insomnia [Not Recovered/Not Resolved]
  - Migraine [Not Recovered/Not Resolved]

NARRATIVE: CASE EVENT DATE: 20210530
